FAERS Safety Report 21199688 (Version 1)
Quarter: 2022Q3

REPORT INFORMATION
  Report Type: Report from Study
  Country: CA (occurrence: CA)
  Receive Date: 20220811
  Receipt Date: 20220811
  Transmission Date: 20221026
  Serious: Yes (Other)
  Sender: FDA-Public Use
  Company Number: CA-JNJFOC-20220410621

PATIENT
  Age: 17 Year
  Sex: Female

DRUGS (2)
  1. REMICADE [Suspect]
     Active Substance: INFLIXIMAB
     Indication: Juvenile idiopathic arthritis
     Dosage: PATIENT WAS INFUSED AT 6 WEEKS INSTEAD OF 4 WEEKS DUE TO SURGERY
     Route: 042
     Dates: start: 20151223, end: 20220707
  2. REMICADE [Suspect]
     Active Substance: INFLIXIMAB
     Indication: Uveitis
     Route: 042

REACTIONS (2)
  - Appendicectomy [Unknown]
  - Off label use [Unknown]

NARRATIVE: CASE EVENT DATE: 20151223
